FAERS Safety Report 7286542-2 (Version None)
Quarter: 2011Q1

REPORT INFORMATION
  Report Type: 
  Country: None (occurrence: None)
  Receive Date: 20110210
  Receipt Date: 20110202
  Transmission Date: 20110831
  Serious: Yes (Other)
  Sender: FDA-Public Use
  Company Number: US-ROCHE-758320

PATIENT
  Age: 69 Year

DRUGS (1)
  1. BONIVA [Suspect]
     Route: 065
     Dates: start: 20090101

REACTIONS (1)
  - FRACTURE [None]
